FAERS Safety Report 6312980-8 (Version None)
Quarter: 2009Q3

REPORT INFORMATION
  Report Type: 
  Country: None (occurrence: None)
  Receive Date: 20090818
  Receipt Date: 20090526
  Transmission Date: 20100115
  Serious: No
  Sender: FDA-Public Use
  Company Number: US-BAYER-200921965NA

PATIENT
  Age: 34 Year
  Sex: Female

DRUGS (1)
  1. OCELLA [Suspect]
     Indication: DRUG USE FOR UNKNOWN INDICATION
     Route: 048
     Dates: start: 20090525

REACTIONS (10)
  - ABDOMINAL PAIN LOWER [None]
  - BODY TEMPERATURE FLUCTUATION [None]
  - CHILLS [None]
  - CRYING [None]
  - DIARRHOEA [None]
  - FEELING COLD [None]
  - NAUSEA [None]
  - PAIN IN EXTREMITY [None]
  - TREMOR [None]
  - VAGINAL HAEMORRHAGE [None]
